FAERS Safety Report 6608825-9 (Version None)
Quarter: 2010Q1

REPORT INFORMATION
  Report Type: 
  Country: None (occurrence: None)
  Receive Date: 20100301
  Receipt Date: 20100219
  Transmission Date: 20100710
  Serious: Yes (Hospitalization)
  Sender: FDA-Public Use
  Company Number: NL-ABBOTT-10P-114-0627288-00

PATIENT
  Sex: Male

DRUGS (4)
  1. HUMIRA [Suspect]
     Indication: CROHN'S DISEASE
     Route: 058
     Dates: start: 20090423, end: 20091220
  2. HUMIRA [Suspect]
     Route: 058
     Dates: start: 20100117
  3. PANTOPRAZOLE SODIUM [Concomitant]
     Indication: GASTROOESOPHAGEAL REFLUX DISEASE
     Dates: start: 20081024
  4. ARTIFICIAL TEARS [Concomitant]
     Indication: CORNEAL DYSTROPHY
     Dates: start: 20090501

REACTIONS (1)
  - PNEUMONIA [None]
